FAERS Safety Report 4688680-7 (Version None)
Quarter: 2005Q2

REPORT INFORMATION
  Report Type: 
  Country: None (occurrence: None)
  Receive Date: 20050608
  Receipt Date: 20050608
  Transmission Date: 20051028
  Serious: Yes (Disabling)
  Sender: FDA-Public Use
  Company Number: None

PATIENT
  Age: 62 Year
  Sex: Male
  Weight: 79.3795 kg

DRUGS (2)
  1. VIAGRA [Suspect]
     Indication: ERECTILE DYSFUNCTION
     Dosage: APPROX 1 TAB/WEEK
  2. GLIPIZIDE [Concomitant]

REACTIONS (3)
  - OPTIC NERVE INJURY [None]
  - VISUAL ACUITY REDUCED [None]
  - VITREOUS FLOATERS [None]
